FAERS Safety Report 8888352 (Version 1)
Quarter: 2012Q4

REPORT INFORMATION
  Report Type: 
  Country: US (occurrence: US)
  Receive Date: 20121106
  Receipt Date: 20121106
  Transmission Date: 20130627
  Serious: No
  Sender: FDA-Public Use
  Company Number: US-PFIZER INC-2012276121

PATIENT
  Age: 35 Year
  Sex: Male
  Weight: 79.37 kg

DRUGS (2)
  1. XANAX [Suspect]
     Indication: WITHDRAWAL SYNDROME
     Dosage: 2 mg,daily at night
  2. BUSPIRONE [Concomitant]
     Indication: ANXIETY
     Dosage: 30 mg, 2x/day

REACTIONS (2)
  - Off label use [Unknown]
  - Drug ineffective [Unknown]
